FAERS Safety Report 4302048-4 (Version None)
Quarter: 2004Q1

REPORT INFORMATION
  Report Type: 
  Country: None (occurrence: None)
  Receive Date: 20040220
  Receipt Date: 20040210
  Transmission Date: 20041129
  Serious: Yes (Hospitalization, Other)
  Sender: FDA-Public Use
  Company Number: 2004005637

PATIENT
  Age: 91 Year
  Sex: Male

DRUGS (4)
  1. TOTALIP (ATORVASTATIN) [Suspect]
     Indication: DYSLIPIDAEMIA
     Dosage: 20 MG (DAILY), ORAL
     Route: 048
     Dates: start: 20031229, end: 20040105
  2. ASCRIPTIN (ACETYLSALICYLIC ACID, MAGNESIUM HYDROXIDE, ALUMINIUM HYDROX [Concomitant]
  3. PROPAFENONE HYDROCHLORIDE (PROPAFENONE HYDROCHLORIDE) [Concomitant]
  4. FUROSEMIDE [Concomitant]

REACTIONS (4)
  - IATROGENIC INJURY [None]
  - MUSCULAR WEAKNESS [None]
  - RHABDOMYOLYSIS [None]
  - VERTIGO [None]
